FAERS Safety Report 6065791-5 (Version None)
Quarter: 2009Q1

REPORT INFORMATION
  Report Type: 
  Country: None (occurrence: None)
  Receive Date: 20090205
  Receipt Date: 20090122
  Transmission Date: 20090719
  Serious: Yes (Other)
  Sender: FDA-Public Use
  Company Number: US-RB-009145-09

PATIENT
  Age: 17 Year
  Sex: Female

DRUGS (3)
  1. MUCINEX DM [Suspect]
     Dates: start: 20090101, end: 20090101
  2. MUCINEX DM [Suspect]
     Dates: start: 20090101, end: 20090101
  3. MUCINEX DM [Suspect]
     Dates: start: 20090101, end: 20090101

REACTIONS (2)
  - DEPRESSED LEVEL OF CONSCIOUSNESS [None]
  - DRUG ABUSE [None]
